FAERS Safety Report 20623074 (Version 1)
Quarter: 2022Q1

REPORT INFORMATION
  Report Type: Spontaneous
  Country: CN (occurrence: CN)
  Receive Date: 20220322
  Receipt Date: 20220322
  Transmission Date: 20220423
  Serious: Yes (Other)
  Sender: FDA-Public Use
  Company Number: CN-BAXTER-2022BAX006128

PATIENT
  Age: 66 Year
  Sex: Female
  Weight: 63 kg

DRUGS (12)
  1. CYCLOPHOSPHAMIDE [Suspect]
     Active Substance: CYCLOPHOSPHAMIDE
     Indication: Breast cancer female
     Dosage: 1-2 CHEMOTHERAPY, CYCLOPHOSPHAMIDE FOR INJECTION (ENDOXAN CTX) + NS
     Route: 042
  2. CYCLOPHOSPHAMIDE [Suspect]
     Active Substance: CYCLOPHOSPHAMIDE
     Dosage: CYCLOPHOSPHAMIDE FOR INJECTION (ENDOXAN CTX) 950 MG + NS 50ML, THIRD CHEMOTHERAPY
     Route: 042
     Dates: start: 20220121, end: 20220121
  3. CYCLOPHOSPHAMIDE [Suspect]
     Active Substance: CYCLOPHOSPHAMIDE
     Dosage: DOSE RE-INTRODUCED, CYCLOPHOSPHAMIDE FOR INJECTION (ENDOXAN CTX) + NS
     Route: 042
  4. SODIUM CHLORIDE [Suspect]
     Active Substance: SODIUM CHLORIDE
     Indication: Medication dilution
     Dosage: 1-2 CHEMOTHERAPY CYCLOPHOSPHAMIDE FOR INJECTION + NS
     Route: 042
  5. SODIUM CHLORIDE [Suspect]
     Active Substance: SODIUM CHLORIDE
     Dosage: 1-2 CHEMOTHERAPY EPIRUBICIN HYDROCHLORIDE FOR INJECTION + NS
     Route: 041
  6. SODIUM CHLORIDE [Suspect]
     Active Substance: SODIUM CHLORIDE
     Dosage: CYCLOPHOSPHAMIDE FOR INJECTION (ENDOXAN CTX) 950 MG + NS 50ML
     Route: 042
     Dates: start: 20220121, end: 20220121
  7. SODIUM CHLORIDE [Suspect]
     Active Substance: SODIUM CHLORIDE
     Dosage: INTRAVENOUS DRIP OF EPIRUBICIN HYDROCHLORIDE FOR INJECTION (PHARMORUBICIN) 132 MG + NS 100ML
     Route: 041
     Dates: start: 20220121, end: 20220121
  8. SODIUM CHLORIDE [Suspect]
     Active Substance: SODIUM CHLORIDE
     Dosage: DOSE RE-INTRODUCED (CYCLOPHOSPHAMIDE+NS)
     Route: 042
  9. SODIUM CHLORIDE [Suspect]
     Active Substance: SODIUM CHLORIDE
     Dosage: DOSE RE-INTRODUCED (EPIRUBICIN HYDROCHLORIDE+NS)
     Route: 041
  10. EPIRUBICIN [Suspect]
     Active Substance: EPIRUBICIN
     Indication: Breast cancer female
     Dosage: 1-2 CHEMOTHERAPY, IV GTT (PHARMORUBICIN) 132 MG + NS 100ML
     Route: 041
  11. EPIRUBICIN [Suspect]
     Active Substance: EPIRUBICIN
     Dosage: IV GTT (PHARMORUBICIN) 132 MG + NS 100ML, 3RD CYCLE OF CHEMOTHERAPY
     Route: 041
     Dates: start: 20220121, end: 20220121
  12. EPIRUBICIN [Suspect]
     Active Substance: EPIRUBICIN
     Dosage: DOSE RE-INTRODUCED, IV GTT (PHARMORUBICIN) 132 MG + NS 100ML
     Route: 041

REACTIONS (2)
  - White blood cell count decreased [Recovered/Resolved]
  - Agranulocytosis [Recovered/Resolved]

NARRATIVE: CASE EVENT DATE: 20220131
